FAERS Safety Report 26110794 (Version 1)
Quarter: 2025Q4

REPORT INFORMATION
  Report Type: Spontaneous
  Country: CN (occurrence: CN)
  Receive Date: 20251202
  Receipt Date: 20251202
  Transmission Date: 20260118
  Serious: Yes (Life-Threatening)
  Sender: GE HEALTHCARE
  Company Number: None

PATIENT
  Age: 41 Year
  Sex: Female
  Weight: 50 kg

DRUGS (1)
  1. OMNIPAQUE [Suspect]
     Active Substance: IOHEXOL
     Indication: Angiogram cerebral
     Dosage: 150 ML, TOTAL
     Route: 042
     Dates: start: 20251107

REACTIONS (6)
  - Gaze palsy [Recovering/Resolving]
  - Hemiparesis [Recovering/Resolving]
  - Altered state of consciousness [Recovered/Resolved]
  - Confusional state [Recovering/Resolving]
  - Erythema [Recovering/Resolving]
  - Anaphylactic shock [Recovering/Resolving]

NARRATIVE: CASE EVENT DATE: 20251107
